FAERS Safety Report 4837359-7 (Version None)
Quarter: 2005Q4

REPORT INFORMATION
  Report Type: 
  Country: None (occurrence: None)
  Receive Date: 20051122
  Receipt Date: 20051109
  Transmission Date: 20060501
  Serious: Yes (Other)
  Sender: FDA-Public Use
  Company Number: 2005139619

PATIENT
  Age: 52 Year
  Sex: Female

DRUGS (8)
  1. LIPITOR [Suspect]
     Indication: HYPERLIPIDAEMIA
     Dosage: 10 MG (1 IN 1 D), ORAL
     Route: 048
     Dates: start: 20041227, end: 20050830
  2. FLUTICASONE PROPIONATE [Concomitant]
  3. SODIUM PICOSULFATE (SODIUM PICOSULFATE) [Concomitant]
  4. CLOTIAZEPAM (CLOTIAZEPAM) [Concomitant]
  5. CYSTEINE (CYSTEINE) [Concomitant]
  6. MAGNESIUM OXIDE (MAGNESIUM OXIDE) [Concomitant]
  7. POLYCARBOPHIL CALCIUM (POLYCARBOPHIL CALCIUM) [Concomitant]
  8. NUTRITIONAL SUPPLEMENT (GENERAL NUTRIENTS) [Concomitant]

REACTIONS (6)
  - ALANINE AMINOTRANSFERASE INCREASED [None]
  - ASPARTATE AMINOTRANSFERASE INCREASED [None]
  - BLOOD LACTATE DEHYDROGENASE INCREASED [None]
  - MUSCULAR DYSTROPHY [None]
  - MYOPATHY [None]
  - MYOSITIS [None]
